FAERS Safety Report 17909117 (Version 1)
Quarter: 2020Q2

REPORT INFORMATION
  Report Type: Spontaneous
  Country: US (occurrence: US)
  Receive Date: 20200617
  Receipt Date: 20200617
  Transmission Date: 20200714
  Serious: No
  Sender: FDA-Public Use
  Company Number: US-LYNE LABORATORIES INC.-2086042

PATIENT
  Sex: Female

DRUGS (1)
  1. FLUOCINOLONE ACETONIDE TOPICAL OIL, 0.01% (SCALP OIL) [Suspect]
     Active Substance: FLUOCINOLONE ACETONIDE
     Route: 061

REACTIONS (2)
  - Skin irritation [Unknown]
  - Skin burning sensation [Unknown]
